FAERS Safety Report 6125762-7 (Version None)
Quarter: 2009Q1

REPORT INFORMATION
  Report Type: 
  Country: None (occurrence: None)
  Receive Date: 20090319
  Receipt Date: 20090319
  Transmission Date: 20090719
  Serious: Yes (Other)
  Sender: FDA-Public Use
  Company Number: None

PATIENT
  Age: 56 Year
  Sex: Male
  Weight: 115.6672 kg

DRUGS (1)
  1. TRILIPIX [Suspect]
     Indication: BLOOD TRIGLYCERIDES INCREASED
     Dosage: 40MG - ONE- ONCE DAILY PO
     Route: 048
     Dates: start: 20090306, end: 20090316

REACTIONS (4)
  - ARTHRALGIA [None]
  - INSOMNIA [None]
  - MOBILITY DECREASED [None]
  - MYALGIA [None]
